FAERS Safety Report 24891798 (Version 7)
Quarter: 2025Q2

REPORT INFORMATION
  Report Type: Report from Study
  Country: JP (occurrence: JP)
  Receive Date: 20250127
  Receipt Date: 20250527
  Transmission Date: 20250716
  Serious: Yes (Other)
  Sender: TAKEDA
  Company Number: JP-TAKEDA-2023TJP012978

PATIENT
  Sex: Female
  Weight: 65.2 kg

DRUGS (9)
  1. ICATIBANT [Suspect]
     Active Substance: ICATIBANT ACETATE
     Indication: Hereditary angioedema with C1 esterase inhibitor deficiency
     Dosage: 30 MILLIGRAM, ONCE/WEEK
     Dates: start: 20190101
  2. ICATIBANT [Suspect]
     Active Substance: ICATIBANT ACETATE
  3. ICATIBANT [Suspect]
     Active Substance: ICATIBANT ACETATE
  4. ICATIBANT [Suspect]
     Active Substance: ICATIBANT ACETATE
  5. TAKHZYRO [Suspect]
     Active Substance: LANADELUMAB-FLYO
     Indication: Hereditary angioedema with C1 esterase inhibitor deficiency
     Dosage: 300 MILLIGRAM, Q2WEEKS
     Dates: start: 20220825, end: 20230810
  6. TAKHZYRO [Suspect]
     Active Substance: LANADELUMAB-FLYO
     Dosage: 300 MILLIGRAM, Q4WEEKS
  7. TAKHZYRO [Suspect]
     Active Substance: LANADELUMAB-FLYO
     Dosage: 300 MILLIGRAM, Q2WEEKS
  8. TRANSAMIN [Concomitant]
     Active Substance: TRANEXAMIC ACID
     Indication: Hereditary angioedema with C1 esterase inhibitor deficiency
  9. BERINERT P [Concomitant]
     Active Substance: HUMAN C1-ESTERASE INHIBITOR

REACTIONS (92)
  - Breast cancer [Unknown]
  - Sudden hearing loss [Recovering/Resolving]
  - Haematochezia [Unknown]
  - Oxygen saturation decreased [Unknown]
  - Tic [Not Recovered/Not Resolved]
  - Physical deconditioning [Unknown]
  - Menopausal symptoms [Unknown]
  - Depression [Unknown]
  - Insomnia [Unknown]
  - Food allergy [Unknown]
  - Seasonal allergy [Unknown]
  - Gastrointestinal disorder [Unknown]
  - Asthenia [Unknown]
  - Rhinitis [Unknown]
  - Physical deconditioning [Unknown]
  - Physical deconditioning [Unknown]
  - Peripheral swelling [Recovered/Resolved]
  - Hypoaesthesia [Recovered/Resolved]
  - Musculoskeletal discomfort [Unknown]
  - Musculoskeletal pain [Recovered/Resolved]
  - Skin disorder [Recovered/Resolved]
  - Movement disorder [Recovered/Resolved]
  - Physical deconditioning [Recovering/Resolving]
  - Dyspnoea [Recovered/Resolved]
  - Body temperature abnormal [Recovered/Resolved]
  - Hypoaesthesia [Recovered/Resolved]
  - Dysphonia [Recovered/Resolved]
  - Malaise [Recovered/Resolved]
  - Seasonal allergy [Recovering/Resolving]
  - Oedema [Recovered/Resolved]
  - Physical deconditioning [Recovered/Resolved]
  - Injection site induration [Unknown]
  - Hereditary angioedema [Unknown]
  - Infusion related reaction [Recovered/Resolved]
  - Stress [Recovered/Resolved]
  - Seasonal allergy [Not Recovered/Not Resolved]
  - Physical deconditioning [Not Recovered/Not Resolved]
  - Paraesthesia [Not Recovered/Not Resolved]
  - Spinal osteoarthritis [Not Recovered/Not Resolved]
  - Menopausal symptoms [Not Recovered/Not Resolved]
  - Somnolence [Not Recovered/Not Resolved]
  - Physical deconditioning [Recovered/Resolved]
  - Dysstasia [Unknown]
  - Skin discolouration [Unknown]
  - Abdominal pain [Unknown]
  - Faecal volume increased [Unknown]
  - Intermenstrual bleeding [Unknown]
  - Faeces discoloured [Unknown]
  - Back pain [Unknown]
  - Dyspepsia [Unknown]
  - Injection site induration [Unknown]
  - Injection site paraesthesia [Unknown]
  - Injection site haemorrhage [Unknown]
  - Injection site discolouration [Unknown]
  - Injection site pain [Unknown]
  - Injection site reaction [Unknown]
  - Pyrexia [Unknown]
  - Headache [Unknown]
  - Injection site erythema [Unknown]
  - Injection site swelling [Unknown]
  - Injection site pain [Unknown]
  - Injection site induration [Unknown]
  - Injection site pain [Unknown]
  - Injection site haemorrhage [Unknown]
  - Injection site bruising [Unknown]
  - Injection site induration [Recovering/Resolving]
  - Injection site pain [Unknown]
  - Dizziness [Unknown]
  - Injection site pain [Unknown]
  - Injection site paraesthesia [Recovered/Resolved]
  - Injection site induration [Recovered/Resolved]
  - Administration site pain [Recovering/Resolving]
  - Nausea [Unknown]
  - Injection site pain [Unknown]
  - Circumstance or information capable of leading to medication error [Unknown]
  - Accidental underdose [Unknown]
  - Circumstance or information capable of leading to medication error [Unknown]
  - Accidental underdose [Unknown]
  - Drug ineffective [Unknown]
  - Circumstance or information capable of leading to medication error [Unknown]
  - Accidental underdose [Unknown]
  - Expired product administered [Unknown]
  - Therapeutic product effect delayed [Unknown]
  - Circumstance or information capable of leading to medication error [Unknown]
  - Accidental underdose [Unknown]
  - Therapeutic product effect incomplete [Recovering/Resolving]
  - Accidental underdose [Recovered/Resolved]
  - Inappropriate schedule of product administration [Recovered/Resolved]
  - Inappropriate schedule of product administration [Unknown]
  - Therapeutic product effect incomplete [Unknown]
  - Syringe issue [Unknown]
  - Device connection issue [Unknown]

NARRATIVE: CASE EVENT DATE: 20200101
